FAERS Safety Report 21982322 (Version 4)
Quarter: 2024Q3

REPORT INFORMATION
  Report Type: Report from Study
  Country: US (occurrence: US)
  Receive Date: 20230213
  Receipt Date: 20240925
  Transmission Date: 20241017
  Serious: No
  Sender: GLAXOSMITHKLINE
  Company Number: US-GLAXOSMITHKLINE-US2023AMR017318

PATIENT
  Sex: Female

DRUGS (3)
  1. NIRAPARIB [Suspect]
     Active Substance: NIRAPARIB
     Indication: Ovarian cancer
     Dosage: 300 MG, QD
     Dates: start: 2017
  2. NIRAPARIB [Suspect]
     Active Substance: NIRAPARIB
     Dosage: 300 MG, QD
  3. NIRAPARIB [Suspect]
     Active Substance: NIRAPARIB
     Dosage: 300 MG, QD

REACTIONS (4)
  - Chronic obstructive pulmonary disease [Unknown]
  - Decreased activity [Unknown]
  - Product dose omission issue [Unknown]
  - Product dose omission in error [Unknown]
